FAERS Safety Report 16872712 (Version 2)
Quarter: 2019Q4

REPORT INFORMATION
  Report Type: Spontaneous
  Country: US (occurrence: US)
  Receive Date: 20191001
  Receipt Date: 20191013
  Transmission Date: 20200122
  Serious: Yes (Life-Threatening, Hospitalization)
  Sender: FDA-Public Use
  Company Number: US-TEVA-2019-US-1115586

PATIENT
  Age: 25 Year
  Sex: Male

DRUGS (15)
  1. METHOTREXATE. [Suspect]
     Active Substance: METHOTREXATE
     Indication: BURKITT^S LYMPHOMA STAGE II
     Dosage: PART OF HYPER-CVAD 1A THERAPY
     Route: 065
  2. CYTARABINE HYDROCHLORIDE [Suspect]
     Active Substance: CYTARABINE HYDROCHLORIDE
     Indication: BURKITT^S LYMPHOMA STAGE II
     Dosage: PART OF HYPER-CVAD 1A THERAPY 100MG/5ML SDV + 500MG/10ML SDV
     Route: 065
  3. DOXORUBICIN [Suspect]
     Active Substance: DOXORUBICIN
     Indication: BURKITT^S LYMPHOMA STAGE II
     Dosage: PART OF HYPER-CVAD 1A THERAPY
     Route: 065
  4. RITUXIMAB. [Suspect]
     Active Substance: RITUXIMAB
     Indication: BURKITT^S LYMPHOMA STAGE II
     Dosage: PART OF EPOCH-R THERAPY
     Route: 065
  5. VINCRISTINE [Suspect]
     Active Substance: VINCRISTINE
     Dosage: PART OF EPOCH-R THERAPY
     Route: 065
  6. DOXORUBICIN [Suspect]
     Active Substance: DOXORUBICIN
     Dosage: PART OF EPOCH-R THERAPY
     Route: 065
  7. PREDNISONE. [Suspect]
     Active Substance: PREDNISONE
     Indication: BURKITT^S LYMPHOMA STAGE II
     Dosage: PART OF EPOCH-R THERAPY
     Route: 065
  8. DEXAMETHASONE. [Suspect]
     Active Substance: DEXAMETHASONE
     Indication: BURKITT^S LYMPHOMA STAGE II
     Dosage: PART OF HYPER-CVAD 1A THERAPY
     Route: 065
  9. CYCLOPHOSPHAMIDE. [Suspect]
     Active Substance: CYCLOPHOSPHAMIDE
     Dosage: PART OF HYPER-CVAD 1A THERAPY
     Route: 065
  10. PEGFILGRASTIM [Concomitant]
     Active Substance: PEGFILGRASTIM
     Indication: NEUTROPENIA
     Route: 065
  11. ALLOPURINOL. [Concomitant]
     Active Substance: ALLOPURINOL
     Indication: BLOOD URIC ACID INCREASED
     Route: 065
  12. CYCLOPHOSPHAMIDE. [Suspect]
     Active Substance: CYCLOPHOSPHAMIDE
     Indication: BURKITT^S LYMPHOMA STAGE II
     Dosage: WITH UNSPECIFIED STEROIDS
     Route: 065
  13. ETOPOSIDE. [Suspect]
     Active Substance: ETOPOSIDE
     Indication: BURKITT^S LYMPHOMA STAGE II
     Dosage: PART OF EPOCH-R THERAPY
     Route: 065
  14. CYCLOPHOSPHAMIDE. [Suspect]
     Active Substance: CYCLOPHOSPHAMIDE
     Dosage: PART OF EPOCH-R THERAPY
     Route: 065
  15. VINCRISTINE [Suspect]
     Active Substance: VINCRISTINE
     Indication: BURKITT^S LYMPHOMA STAGE II
     Dosage: PART OF HYPER-CVAD 1A THERAPY
     Route: 065

REACTIONS (13)
  - Decreased appetite [Unknown]
  - Diarrhoea [Unknown]
  - Herpes dermatitis [Recovering/Resolving]
  - Mucosal inflammation [Unknown]
  - Hyperglycaemia [Unknown]
  - Hypertension [Unknown]
  - Neuropathy peripheral [Unknown]
  - Tumour lysis syndrome [Recovering/Resolving]
  - Fluid overload [Unknown]
  - Nausea [Unknown]
  - Neutropenia [Recovering/Resolving]
  - Acute kidney injury [Recovering/Resolving]
  - Headache [Unknown]
